FAERS Safety Report 9346638 (Version 3)
Quarter: 2013Q4

REPORT INFORMATION
  Report Type: Report from Study
  Country: US (occurrence: US)
  Receive Date: 20130613
  Receipt Date: 20131218
  Transmission Date: 20140711
  Serious: Yes (Hospitalization)
  Sender: FDA-Public Use
  Company Number: US-UCBSA-088219

PATIENT
  Age: 71 Year
  Sex: Female
  Weight: 90.7 kg

DRUGS (22)
  1. CERTOLIZUMAB PEGOL [Suspect]
     Indication: PSORIATIC ARTHROPATHY
     Dosage: DOSE: 400 MG
     Route: 058
     Dates: start: 20100610, end: 20130401
  2. FOLIC ACID [Concomitant]
     Indication: VITAMIN SUPPLEMENTATION
     Route: 048
     Dates: start: 2004
  3. METOPROLOL [Concomitant]
     Indication: CORONARY ARTERY DISEASE
     Route: 048
     Dates: start: 2000, end: 20130427
  4. AMIODARONE [Concomitant]
     Indication: CORONARY ARTERY DISEASE
     Route: 048
     Dates: start: 20110301, end: 20130427
  5. ALLOPURINOL [Concomitant]
     Indication: BLOOD CREATININE INCREASED
     Route: 048
     Dates: start: 20110823, end: 20130427
  6. METHOTREXATE [Concomitant]
     Indication: PSORIATIC ARTHROPATHY
     Route: 058
     Dates: start: 2004, end: 20130427
  7. LEVEMIR [Concomitant]
     Indication: DIABETES MELLITUS
     Dosage: DOSE PER INTAKE: 80 UNITS; QHS
     Route: 058
     Dates: start: 2008, end: 20130427
  8. REGULAR INSULIN [Concomitant]
     Indication: DIABETES MELLITUS
     Dosage: PER SLIDING SCALE
     Dates: start: 2008
  9. DIGOXIN [Concomitant]
     Indication: CORONARY ARTERY DISEASE
     Route: 048
     Dates: start: 2000
  10. LISINOPRIL [Concomitant]
     Indication: HYPERTENSION
     Route: 048
     Dates: start: 2000, end: 20130427
  11. ZOLOFT [Concomitant]
     Indication: DEPRESSION
     Route: 048
     Dates: start: 2003, end: 20130427
  12. LEVOTHYROXINE [Concomitant]
     Indication: HYPOTHYROIDISM
     Route: 048
     Dates: start: 1998, end: 20130427
  13. ISOSORBIDE [Concomitant]
     Indication: CORONARY ARTERY DISEASE
     Route: 048
     Dates: start: 2000
  14. PRILOSEC [Concomitant]
     Indication: GASTROOESOPHAGEAL REFLUX DISEASE
     Route: 048
     Dates: start: 2004, end: 20130427
  15. ASPIRIN [Concomitant]
     Indication: CARDIOVASCULAR EVENT PROPHYLAXIS
     Route: 048
     Dates: start: 2003
  16. FLEXERIL [Concomitant]
     Indication: MUSCLE SPASMS
     Dosage: QHS
     Route: 048
     Dates: start: 20101208, end: 20130427
  17. METFORMIN [Concomitant]
     Indication: DIABETES MELLITUS
     Route: 048
     Dates: start: 20110428, end: 20130427
  18. LIPITOR [Concomitant]
     Indication: HYPERLIPIDAEMIA
     Route: 048
     Dates: start: 20110525, end: 20130427
  19. AMBIEN [Concomitant]
     Indication: INSOMNIA
     Dosage: QHS
     Route: 048
     Dates: start: 20110630, end: 20130427
  20. VITAMIN E [Concomitant]
     Indication: VITAMIN SUPPLEMENTATION
     Dosage: DURING ELEVATED AST
     Route: 048
  21. CARDIZEM [Concomitant]
     Indication: HYPERTENSION
     Route: 048
     Dates: start: 20120514, end: 20130427
  22. BENGAY [Concomitant]
     Dosage: 1 APPLICATION
     Dates: start: 20130427

REACTIONS (2)
  - Hypoxia [Recovered/Resolved]
  - Pneumonia [Recovered/Resolved]
